FAERS Safety Report 17958707 (Version 2)
Quarter: 2020Q3

REPORT INFORMATION
  Report Type: Spontaneous
  Country: US (occurrence: US)
  Receive Date: 20200630
  Receipt Date: 20200709
  Transmission Date: 20201103
  Serious: No
  Sender: FDA-Public Use
  Company Number: US-ASTRAZENECA-2020SE73964

PATIENT
  Sex: Male

DRUGS (3)
  1. GENRIC PLAVIX [Concomitant]
     Indication: CARDIAC DISORDER
  2. BYDUREON BCISE [Suspect]
     Active Substance: EXENATIDE
     Indication: TYPE 2 DIABETES MELLITUS
     Route: 058
  3. ELIQUIS [Concomitant]
     Active Substance: APIXABAN
     Indication: CARDIAC DISORDER

REACTIONS (10)
  - Product dose omission issue [Unknown]
  - Diabetes mellitus [Unknown]
  - Needle issue [Recovered/Resolved]
  - Peripheral swelling [Unknown]
  - Injection site erythema [Unknown]
  - Wrong technique in device usage process [Unknown]
  - Injection site haemorrhage [Recovered/Resolved]
  - Intentional product misuse [Unknown]
  - Incorrect dose administered by product [Unknown]
  - Product use issue [Unknown]
